FAERS Safety Report 23546149 (Version 1)
Quarter: 2024Q1

REPORT INFORMATION
  Report Type: Spontaneous
  Country: CZ (occurrence: CZ)
  Receive Date: 20240220
  Receipt Date: 20240220
  Transmission Date: 20240410
  Serious: Yes (Life-Threatening, Hospitalization, Other)
  Sender: FDA-Public Use
  Company Number: None

PATIENT
  Age: 66 Year
  Sex: Male
  Weight: 80 kg

DRUGS (2)
  1. ALTEPLASE [Suspect]
     Active Substance: ALTEPLASE
     Indication: Ischaemic stroke
     Dosage: SINGLE-TIME, INTRAVENOUSLY, 7MG AT ONCE, THEN THE REST OVER THE TIME OF 60 MINUTES
     Route: 042
     Dates: start: 20240119, end: 20240119
  2. CEFUROXIME AXETIL [Concomitant]
     Active Substance: CEFUROXIME AXETIL
     Indication: Urinary tract infection
     Dates: start: 20240116

REACTIONS (5)
  - Cerebral haemorrhage [Unknown]
  - Neurological decompensation [Unknown]
  - Somnolence [Unknown]
  - Hypertension [Unknown]
  - Headache [Unknown]

NARRATIVE: CASE EVENT DATE: 20240119
